FAERS Safety Report 4611735-X (Version None)
Quarter: 2005Q2

REPORT INFORMATION
  Report Type: 
  Country: None (occurrence: None)
  Receive Date: 20050311
  Receipt Date: 20041216
  Transmission Date: 20051028
  Serious: No
  Sender: FDA-Public Use
  Company Number: 2004-BP-14038BP

PATIENT
  Age: 72 Year
  Sex: Male

DRUGS (7)
  1. SPIRIVA [Suspect]
     Dosage: (18 MCG), IH;  (18 MCG), IH
     Route: 055
     Dates: start: 20041019, end: 20041022
  2. SPIRIVA [Suspect]
     Dosage: (18 MCG), IH;  (18 MCG), IH
     Route: 055
     Dates: start: 20040501
  3. MICARDIS [Concomitant]
  4. ACIPHEX [Concomitant]
  5. ACETYLSALICYLIC ACID SRT [Concomitant]
  6. ADVAIR DISKUS 100/50 [Concomitant]
  7. ALBUTEROL [Concomitant]

REACTIONS (5)
  - ASTHENIA [None]
  - FEELING JITTERY [None]
  - HYPERHIDROSIS [None]
  - NAUSEA [None]
  - STOMACH DISCOMFORT [None]
